FAERS Safety Report 5126986-8 (Version None)
Quarter: 2006Q4

REPORT INFORMATION
  Report Type: 
  Country: None (occurrence: None)
  Receive Date: 20061013
  Receipt Date: 20061003
  Transmission Date: 20070319
  Serious: Yes (Death)
  Sender: FDA-Public Use
  Company Number: ZW-GILEAD-2006-0010367

PATIENT
  Age: 29 Year
  Sex: Female

DRUGS (7)
  1. EMTRICITABINE [Suspect]
     Indication: HIV INFECTION
     Route: 048
     Dates: start: 20060905, end: 20060922
  2. TENOFOVIR DISOPROXIL FUMARATE [Suspect]
     Indication: HIV INFECTION
     Route: 048
     Dates: start: 20060905, end: 20060922
  3. NEVIRAPINE [Suspect]
     Indication: HIV INFECTION
     Route: 048
     Dates: start: 20060905, end: 20060922
  4. ISONIAZID [Concomitant]
     Indication: TUBERCULOSIS
     Dates: start: 20060914
  5. RIFAMPICIN [Concomitant]
     Indication: TUBERCULOSIS
     Dates: start: 20060914
  6. PYRAZINAMIDE [Concomitant]
     Indication: TUBERCULOSIS
     Dates: start: 20060914
  7. ETHAMBUTOL HYDROCHLORIDE [Concomitant]
     Indication: TUBERCULOSIS
     Dates: start: 20060914

REACTIONS (6)
  - CHEST PAIN [None]
  - DEATH [None]
  - FALL [None]
  - PLEURAL EFFUSION [None]
  - PRODUCTIVE COUGH [None]
  - PULMONARY TUBERCULOSIS [None]
